FAERS Safety Report 23951927 (Version 4)
Quarter: 2025Q1

REPORT INFORMATION
  Report Type: Spontaneous
  Country: US (occurrence: US)
  Receive Date: 20240607
  Receipt Date: 20250124
  Transmission Date: 20250408
  Serious: Yes (Other)
  Sender: PFIZER
  Company Number: US-PFIZER INC-202400188552

PATIENT
  Age: 67 Year
  Sex: Male

DRUGS (1)
  1. VELSIPITY [Suspect]
     Active Substance: ETRASIMOD ARGININE
     Dosage: 2 MG TAKE 1 TABLET BY MOUTH ONCE A DAY AS DIRECTED FOR 30 DAYS
     Route: 048
     Dates: start: 20240426

REACTIONS (9)
  - Colitis ulcerative [Unknown]
  - Rash [Unknown]
  - Haemorrhoids [Unknown]
  - Blood alkaline phosphatase increased [Unknown]
  - Prostatomegaly [Unknown]
  - Renal cyst [Unknown]
  - Bone disorder [Unknown]
  - Hepatic cyst [Unknown]
  - Herpes zoster [Unknown]

NARRATIVE: CASE EVENT DATE: 20240101
